FAERS Safety Report 18592092 (Version 1)
Quarter: 2020Q4

REPORT INFORMATION
  Report Type: Report from Study
  Country: BR (occurrence: BR)
  Receive Date: 20201208
  Receipt Date: 20201208
  Transmission Date: 20210114
  Serious: Yes (Life-Threatening, Hospitalization, Other)
  Sender: FDA-Public Use
  Company Number: BR-UCBSA-2020047591

PATIENT
  Age: 66 Year
  Sex: Female
  Weight: 81 kg

DRUGS (5)
  1. INSULIN NPH [INSULIN ISOPHANE BOVINE] [Concomitant]
     Indication: DIABETES MELLITUS
     Dosage: 2 DOSAGE FORM, UNK
  2. CERTOLIZUMAB PEGOL [Suspect]
     Active Substance: CERTOLIZUMAB PEGOL
     Indication: PSORIATIC ARTHROPATHY
     Dosage: UNK
     Route: 058
     Dates: start: 20190730, end: 202009
  3. INSULIN [Concomitant]
     Active Substance: INSULIN NOS
     Indication: DIABETES MELLITUS
     Dosage: 2 DOSAGE FORM, UNK
  4. LOSARTANA POTASSICA [Concomitant]
     Active Substance: LOSARTAN
     Indication: HYPERTENSION
     Dosage: 2 DOSAGE FORM, UNK
     Route: 048
  5. ATENOLOL. [Concomitant]
     Active Substance: ATENOLOL
     Indication: HYPERTENSION
     Dosage: 2 DOSAGE FORM, UNK
     Route: 048

REACTIONS (7)
  - Malaise [Recovering/Resolving]
  - Memory impairment [Recovered/Resolved]
  - Intracranial aneurysm [Recovered/Resolved]
  - Blood pressure increased [Recovering/Resolving]
  - Cerebrovascular accident [Recovered/Resolved]
  - Urinary tract infection [Recovering/Resolving]
  - Asthenia [Recovering/Resolving]

NARRATIVE: CASE EVENT DATE: 2020
